FAERS Safety Report 5380862-4 (Version None)
Quarter: 2007Q3

REPORT INFORMATION
  Report Type: 
  Country: None (occurrence: None)
  Receive Date: 20070706
  Receipt Date: 20070626
  Transmission Date: 20080115
  Serious: Yes (Death)
  Sender: FDA-Public Use
  Company Number: US-JNJFOC-20070507187

PATIENT
  Age: 40 Year
  Sex: Female
  Weight: 95.26 kg

DRUGS (2)
  1. DURAGESIC-100 [Suspect]
     Indication: DRUG USE FOR UNKNOWN INDICATION
     Route: 062
  2. OXYCONTIN [Concomitant]
     Indication: PAIN
     Route: 048

REACTIONS (5)
  - ANALGESIC DRUG LEVEL [None]
  - APPLICATION SITE DISCOLOURATION [None]
  - HOMICIDE [None]
  - INTENTIONAL DRUG MISUSE [None]
  - OVERDOSE [None]
